FAERS Safety Report 10352351 (Version 1)
Quarter: 2014Q3

REPORT INFORMATION
  Report Type: Spontaneous
  Country: US (occurrence: US)
  Receive Date: 20140730
  Receipt Date: 20140730
  Transmission Date: 20150326
  Serious: No
  Sender: FDA-Public Use
  Company Number: US-ABBVIE-13P-163-1129784-00

PATIENT
  Sex: Male

DRUGS (1)
  1. SYNTHROID [Suspect]
     Active Substance: LEVOTHYROXINE SODIUM
     Indication: PAPILLARY THYROID CANCER

REACTIONS (6)
  - Hyperhidrosis [Unknown]
  - Malaise [Unknown]
  - Erectile dysfunction [Unknown]
  - Ejaculation failure [Unknown]
  - Loss of libido [Unknown]
  - Fatigue [Unknown]
